FAERS Safety Report 18469149 (Version 1)
Quarter: 2020Q4

REPORT INFORMATION
  Report Type: Spontaneous
  Country: JP (occurrence: JP)
  Receive Date: 20201105
  Receipt Date: 20201105
  Transmission Date: 20210114
  Serious: Yes (Other)
  Sender: FDA-Public Use
  Company Number: JP-GILEAD-2020-0501762

PATIENT
  Age: 64 Year
  Sex: Male
  Weight: 72 kg

DRUGS (6)
  1. AVIGAN [Concomitant]
     Active Substance: FAVIPIRAVIR
     Dosage: 800 MG, BID
     Route: 048
     Dates: start: 20201013
  2. REMDESIVIR. [Suspect]
     Active Substance: REMDESIVIR
     Indication: COVID-19
     Dosage: 200 MG, QD
     Route: 041
     Dates: start: 20201019, end: 20201019
  3. AVIGAN [Concomitant]
     Active Substance: FAVIPIRAVIR
     Dosage: 1800 MG, BID
     Route: 048
     Dates: start: 20201012, end: 20201012
  4. SULBACILLIN [Concomitant]
     Active Substance: AMPICILLIN SODIUM\SULBACTAM SODIUM
     Dosage: 1.5 G, QID
     Route: 041
     Dates: start: 20201012
  5. DEXART [Concomitant]
     Active Substance: DEXAMETHASONE SODIUM PHOSPHATE
     Dosage: 6.6 MG, QD
     Route: 042
     Dates: start: 20201012
  6. REMDESIVIR. [Suspect]
     Active Substance: REMDESIVIR
     Dosage: 100 MG, QD
     Route: 041
     Dates: start: 20201020, end: 20201024

REACTIONS (2)
  - Alanine aminotransferase increased [Recovering/Resolving]
  - Liver disorder [Recovering/Resolving]

NARRATIVE: CASE EVENT DATE: 20201020
